FAERS Safety Report 26164146 (Version 1)
Quarter: 2025Q4

REPORT INFORMATION
  Report Type: Report from Study
  Country: CA (occurrence: CA)
  Receive Date: 20251216
  Receipt Date: 20251216
  Transmission Date: 20260118
  Serious: No
  Sender: BLUEPRINT MEDICINES
  Company Number: CA-Blueprint Medicines Corporation-2025-AER-02707

PATIENT
  Age: 35 Year
  Sex: Female

DRUGS (2)
  1. AVAPRITINIB [Suspect]
     Active Substance: AVAPRITINIB
     Indication: Smouldering systemic mastocytosis
     Dosage: TAKE ONE 50MG TABLET ALONG WITH ONE 100MG TABLET (TOTAL OF 150MG) ONCE DAILY
     Route: 048
     Dates: start: 20250322
  2. AVAPRITINIB [Suspect]
     Active Substance: AVAPRITINIB
     Dosage: TAKE ONE 50MG TABLET ALONG WITH ONE 100MG TABLET (TOTAL OF 150MG) ONCE DAILY
     Route: 048
     Dates: start: 20250322

REACTIONS (6)
  - Nasopharyngitis [Recovering/Resolving]
  - Influenza [Recovering/Resolving]
  - Hypersomnia [Recovering/Resolving]
  - Vomiting [Recovering/Resolving]
  - Productive cough [Recovering/Resolving]
  - Off label use [Unknown]
